FAERS Safety Report 16426995 (Version 1)
Quarter: 2019Q3

REPORT INFORMATION
  Report Type: Spontaneous
  Country: US (occurrence: US)
  Receive Date: 20190612
  Receipt Date: 20190612
  Transmission Date: 20191004
  Serious: Yes (Disabling)
  Sender: FDA-Public Use
  Company Number: None

PATIENT
  Age: 25 Year
  Sex: Female
  Weight: 81 kg

DRUGS (6)
  1. NEXPLANON [Concomitant]
     Active Substance: ETONOGESTREL
  2. LAVENDER ESSENTIAL OIL [Concomitant]
  3. IBUPROFEN. [Concomitant]
     Active Substance: IBUPROFEN
  4. EMGALITY [Suspect]
     Active Substance: GALCANEZUMAB-GNLM
     Indication: MIGRAINE
     Dosage: ?          OTHER FREQUENCY:ONCE A MONTH;?
     Route: 058
     Dates: start: 20190329, end: 20190612
  5. GABAPENTIN. [Concomitant]
     Active Substance: GABAPENTIN
  6. ROBAXIN [Concomitant]
     Active Substance: METHOCARBAMOL

REACTIONS (4)
  - Dyspepsia [None]
  - Hypophagia [None]
  - Abdominal pain upper [None]
  - Nephrolithiasis [None]

NARRATIVE: CASE EVENT DATE: 20190506
